APPROVED DRUG PRODUCT: MORPHINE SULFATE
Active Ingredient: MORPHINE SULFATE
Strength: 60MG
Dosage Form/Route: TABLET, EXTENDED RELEASE;ORAL
Application: A200824 | Product #003
Applicant: RISING PHARMA HOLDINGS INC
Approved: Oct 18, 2011 | RLD: No | RS: No | Type: DISCN